FAERS Safety Report 16301011 (Version 2)
Quarter: 2020Q4

REPORT INFORMATION
  Report Type: Spontaneous
  Country: US (occurrence: US)
  Receive Date: 20190510
  Receipt Date: 20201204
  Transmission Date: 20210113
  Serious: Yes (Death, Hospitalization, Disabling, Other)
  Sender: FDA-Public Use
  Company Number: US-ASTRAZENECA-2019SE65952

PATIENT
  Age: 20942 Day
  Sex: Female
  Weight: 88 kg

DRUGS (68)
  1. PRILOSEC OTC [Suspect]
     Active Substance: OMEPRAZOLE MAGNESIUM
     Indication: GASTROOESOPHAGEAL REFLUX DISEASE
     Route: 048
     Dates: start: 20090409
  2. IBUPROFEN. [Concomitant]
     Active Substance: IBUPROFEN
     Indication: PAIN
     Dates: start: 2013, end: 2017
  3. AZELASTINE. [Concomitant]
     Active Substance: AZELASTINE HYDROCHLORIDE
  4. DILTIAZEM. [Concomitant]
     Active Substance: DILTIAZEM
  5. CALCITRIOL. [Concomitant]
     Active Substance: CALCITRIOL
  6. FOLATE [Concomitant]
     Active Substance: FOLATE SODIUM
  7. DULCOLAX NOS [Concomitant]
     Active Substance: BISACODYL OR DOCUSATE SODIUM
  8. AMINOCAPROIC [Concomitant]
  9. NEXIUM [Suspect]
     Active Substance: ESOMEPRAZOLE MAGNESIUM
     Indication: GASTROOESOPHAGEAL REFLUX DISEASE
     Route: 048
     Dates: start: 201010, end: 201203
  10. PRILOSEC [Suspect]
     Active Substance: OMEPRAZOLE MAGNESIUM
     Indication: GASTROOESOPHAGEAL REFLUX DISEASE
     Route: 048
     Dates: start: 20090721, end: 20151001
  11. PREVACID [Suspect]
     Active Substance: LANSOPRAZOLE
     Indication: GASTROOESOPHAGEAL REFLUX DISEASE
     Dosage: GENERIC
     Route: 065
     Dates: start: 20140622, end: 20150804
  12. LISINOPRIL. [Concomitant]
     Active Substance: LISINOPRIL
     Indication: HYPERTENSION
     Dates: start: 20100824
  13. FUROSEMIDE. [Concomitant]
     Active Substance: FUROSEMIDE
     Indication: FLUID RETENTION
     Dates: start: 20160322, end: 20170131
  14. OMEGA 3 [Concomitant]
     Active Substance: OMEGA-3 FATTY ACIDS
     Indication: MULTI-VITAMIN DEFICIENCY
     Dates: start: 2013, end: 2017
  15. PREDNISONE. [Concomitant]
     Active Substance: PREDNISONE
  16. CYCLOBENZAPRINE. [Concomitant]
     Active Substance: CYCLOBENZAPRINE
  17. FACTOR V LEIDEN [Concomitant]
  18. DECADRON [Concomitant]
     Active Substance: DEXAMETHASONE
  19. ZINC OXIDE. [Concomitant]
     Active Substance: ZINC OXIDE
  20. PANTOPRAZOLE IV [Suspect]
     Active Substance: PANTOPRAZOLE SODIUM
     Indication: GASTROOESOPHAGEAL REFLUX DISEASE
     Route: 065
     Dates: start: 20170506
  21. FAMOTIDINE. [Concomitant]
     Active Substance: FAMOTIDINE
  22. CALCIUM ACETATE. [Concomitant]
     Active Substance: CALCIUM ACETATE
  23. DOCUSATE SODIUM. [Concomitant]
     Active Substance: DOCUSATE SODIUM
  24. PROAIR HFA [Concomitant]
     Active Substance: ALBUTEROL SULFATE
  25. POLYETHYLENE GLYCOL [Concomitant]
     Active Substance: POLYETHYLENE GLYCOLS
  26. OXAPROZIN. [Concomitant]
     Active Substance: OXAPROZIN
  27. CHERATUSSIN [Concomitant]
     Active Substance: AMMONIUM CHLORIDE\DEXTROMETHORPHAN\SODIUM CITRATE
  28. CALCIUM [Concomitant]
     Active Substance: CALCIUM
  29. ALBUMIN [Concomitant]
     Active Substance: ALBUMIN HUMAN
  30. PANTOPRAZOLE [Suspect]
     Active Substance: PANTOPRAZOLE
     Indication: GASTROOESOPHAGEAL REFLUX DISEASE
     Dosage: 20/40 MG DAILY
     Route: 065
     Dates: start: 20140519, end: 20170706
  31. ASPIRIN. [Concomitant]
     Active Substance: ASPIRIN
     Indication: BLOOD VISCOSITY ABNORMAL
     Dates: start: 2013, end: 2017
  32. VITAMIN D [Concomitant]
     Active Substance: VITAMIN D NOS
     Indication: MULTI-VITAMIN DEFICIENCY
     Dates: start: 2013, end: 2017
  33. MONTELUKAST [Concomitant]
     Active Substance: MONTELUKAST SODIUM
  34. LEVOFLOXACIN. [Concomitant]
     Active Substance: LEVOFLOXACIN
  35. FEXOFENADINE [Concomitant]
     Active Substance: FEXOFENADINE HYDROCHLORIDE
  36. AMOX/K CLAV [Concomitant]
     Active Substance: AMOXICILLIN\CLAVULANATE POTASSIUM
  37. DARBEPOETIN [Concomitant]
     Active Substance: DARBEPOETIN ALFA
  38. TRIAMTERENE. [Concomitant]
     Active Substance: TRIAMTERENE
  39. ZOSYN [Concomitant]
     Active Substance: PIPERACILLIN SODIUM\TAZOBACTAM SODIUM
  40. NEXIUM [Suspect]
     Active Substance: ESOMEPRAZOLE MAGNESIUM
     Indication: GASTROOESOPHAGEAL REFLUX DISEASE
     Route: 048
     Dates: start: 20100824, end: 20160119
  41. PRILOSEC [Suspect]
     Active Substance: OMEPRAZOLE MAGNESIUM
     Indication: GASTROOESOPHAGEAL REFLUX DISEASE
     Dosage: GENERIC
     Route: 065
     Dates: start: 20150320, end: 20170202
  42. PRILOSEC OTC [Suspect]
     Active Substance: OMEPRAZOLE MAGNESIUM
     Indication: GASTROOESOPHAGEAL REFLUX DISEASE
     Route: 048
     Dates: start: 201010, end: 201203
  43. ACIPHEX [Suspect]
     Active Substance: RABEPRAZOLE SODIUM
     Route: 065
  44. AMOXICILLIN. [Concomitant]
     Active Substance: AMOXICILLIN
     Indication: ANTIBIOTIC LEVEL
     Dates: start: 20110222, end: 20170202
  45. AZITHROMYCIN ANHYDROUS. [Concomitant]
     Active Substance: AZITHROMYCIN ANHYDROUS
     Indication: ANTIBIOTIC LEVEL
     Dates: start: 20101110, end: 20120128
  46. MULTIVITAMINS [Concomitant]
     Active Substance: VITAMINS
     Indication: MULTI-VITAMIN DEFICIENCY
     Dates: start: 2013, end: 2017
  47. LISINOPRIL HCTZ [Concomitant]
     Active Substance: HYDROCHLOROTHIAZIDE\LISINOPRIL
  48. METOLAZONE. [Concomitant]
     Active Substance: METOLAZONE
  49. FLONASE [Concomitant]
     Active Substance: FLUTICASONE PROPIONATE
  50. ASCORBIC ACID. [Concomitant]
     Active Substance: ASCORBIC ACID
  51. PERCOCET [Concomitant]
     Active Substance: ACETAMINOPHEN\OXYCODONE HYDROCHLORIDE
  52. NEXIUM [Suspect]
     Active Substance: ESOMEPRAZOLE MAGNESIUM
     Indication: GASTROOESOPHAGEAL REFLUX DISEASE
     Dosage: GENERIC
     Route: 065
     Dates: start: 20151027, end: 20160119
  53. CLOTRIMAZOLE. [Concomitant]
     Active Substance: CLOTRIMAZOLE
  54. FEXOFENADINE HYDROCHLORIDE. [Concomitant]
     Active Substance: FEXOFENADINE HYDROCHLORIDE
  55. MAGNESIUM OXIDE. [Concomitant]
     Active Substance: MAGNESIUM OXIDE
  56. BENZONATATE. [Concomitant]
     Active Substance: BENZONATATE
  57. CELEBREX [Concomitant]
     Active Substance: CELECOXIB
  58. METAMUCIL [Concomitant]
     Active Substance: PLANTAGO SEED
  59. RITUXIMAB. [Concomitant]
     Active Substance: RITUXIMAB
  60. PREVACID [Suspect]
     Active Substance: LANSOPRAZOLE
     Indication: GASTROOESOPHAGEAL REFLUX DISEASE
     Route: 065
     Dates: start: 201010, end: 201203
  61. PREVACID 24 HR [Suspect]
     Active Substance: LANSOPRAZOLE
     Indication: GASTROOESOPHAGEAL REFLUX DISEASE
     Route: 065
     Dates: start: 20140622, end: 20150804
  62. ONDANSETRON [Concomitant]
     Active Substance: ONDANSETRON
  63. OXYCODONE [Concomitant]
     Active Substance: OXYCODONE
  64. METHYLPREDNISOLONE. [Concomitant]
     Active Substance: METHYLPREDNISOLONE
  65. URIC ACID [Concomitant]
     Active Substance: URIC ACID
  66. SENOKOT [Concomitant]
     Active Substance: SENNOSIDES
  67. PHOSPHORUS [Concomitant]
     Active Substance: PHOSPHORUS
  68. ULTRAM [Concomitant]
     Active Substance: TRAMADOL HYDROCHLORIDE

REACTIONS (12)
  - Chronic kidney disease-mineral and bone disorder [Unknown]
  - Chronic kidney disease [Unknown]
  - Nephrogenic anaemia [Unknown]
  - Cardiomyopathy [Fatal]
  - Hypoxic-ischaemic encephalopathy [Fatal]
  - Cardiac arrest [Fatal]
  - Acute kidney injury [Unknown]
  - Renal failure [Unknown]
  - Tubulointerstitial nephritis [Unknown]
  - End stage renal disease [Unknown]
  - Hyperparathyroidism secondary [Unknown]
  - Hypertension [Fatal]

NARRATIVE: CASE EVENT DATE: 20170227
